FAERS Safety Report 19889118 (Version 1)
Quarter: 2021Q3

REPORT INFORMATION
  Report Type: Report from Study
  Country: GB (occurrence: GB)
  Receive Date: 20210928
  Receipt Date: 20210928
  Transmission Date: 20211014
  Serious: Yes (Other)
  Sender: FDA-Public Use
  Company Number: GB-TEVA-2021-GB-1958242

PATIENT
  Sex: Female

DRUGS (1)
  1. AJOVY [Suspect]
     Active Substance: FREMANEZUMAB-VFRM
     Dates: end: 202107

REACTIONS (5)
  - Inappropriate schedule of product administration [Unknown]
  - Brain neoplasm [Unknown]
  - Depression [Unknown]
  - Wheelchair user [Unknown]
  - Decubitus ulcer [Unknown]
